FAERS Safety Report 21376593 (Version 5)
Quarter: 2022Q4

REPORT INFORMATION
  Report Type: Spontaneous
  Country: US (occurrence: US)
  Receive Date: 20220926
  Receipt Date: 20221114
  Transmission Date: 20230113
  Serious: Yes (Other)
  Sender: FDA-Public Use
  Company Number: US-PFIZER INC-PV202200069615

PATIENT
  Age: 72 Year
  Sex: Female
  Weight: 58.05 kg

DRUGS (2)
  1. ESTRING [Suspect]
     Active Substance: ESTRADIOL
     Indication: Vulvovaginal dryness
     Dosage: INSERT FOR 3 MONTHS 3 DAYS
     Dates: start: 2022
  2. ESTRING [Suspect]
     Active Substance: ESTRADIOL
     Dosage: INSERT FOR 3 MONTHS 3 DAYS
     Dates: start: 202209, end: 2022

REACTIONS (5)
  - Vulvovaginal discomfort [Recovered/Resolved]
  - Insomnia [Recovered/Resolved]
  - Vaginal haemorrhage [Recovered/Resolved]
  - Vulvovaginal pain [Recovered/Resolved]
  - Off label use [Unknown]

NARRATIVE: CASE EVENT DATE: 20220101
